FAERS Safety Report 23015667 (Version 2)
Quarter: 2024Q2

REPORT INFORMATION
  Report Type: Spontaneous
  Country: HR (occurrence: HR)
  Receive Date: 20231002
  Receipt Date: 20240426
  Transmission Date: 20240716
  Serious: No
  Sender: FDA-Public Use
  Company Number: HR-Orion Corporation ORION PHARMA-DEX 2023-0160

PATIENT
  Age: 35 Year
  Sex: Female

DRUGS (6)
  1. DEXMEDETOMIDINE [Suspect]
     Active Substance: DEXMEDETOMIDINE
     Indication: Sedation
     Dosage: UNK
     Route: 065
  2. DEXMEDETOMIDINE [Suspect]
     Active Substance: DEXMEDETOMIDINE
     Indication: Anaesthesia
  3. ROCURONIUM [Suspect]
     Active Substance: ROCURONIUM BROMIDE
     Indication: Sedation
     Dosage: UNK
     Route: 065
  4. ROCURONIUM [Suspect]
     Active Substance: ROCURONIUM BROMIDE
     Indication: Anaesthesia
  5. PROPOFOL [Suspect]
     Active Substance: PROPOFOL
     Indication: Sedation
     Dosage: UNK
     Route: 065
  6. SEVOFLURANE [Suspect]
     Active Substance: SEVOFLURANE
     Indication: Anaesthesia
     Dosage: UNK
     Route: 065

REACTIONS (2)
  - Maternal exposure during delivery [Recovered/Resolved]
  - Maternal exposure during pregnancy [Recovered/Resolved]
